FAERS Safety Report 5709988-X (Version None)
Quarter: 2008Q2

REPORT INFORMATION
  Report Type: 
  Country: None (occurrence: None)
  Receive Date: 20080418
  Receipt Date: 20070620
  Transmission Date: 20081010
  Serious: No
  Sender: FDA-Public Use
  Company Number: US-ASTRAZENECA-2007UW14772

PATIENT
  Age: 79 Year
  Sex: Male
  Weight: 104.3 kg

DRUGS (2)
  1. TOPROL-XL [Suspect]
     Indication: HYPERTENSION
     Route: 048
     Dates: start: 20050101
  2. CENTRUM [Concomitant]

REACTIONS (6)
  - ANOREXIA [None]
  - ASTHENIA [None]
  - BRONCHITIS [None]
  - COUGH [None]
  - DYSPNOEA [None]
  - PNEUMONIA PRIMARY ATYPICAL [None]
